FAERS Safety Report 6895435-1 (Version None)
Quarter: 2010Q3

REPORT INFORMATION
  Report Type: 
  Country: None (occurrence: None)
  Receive Date: 20100802
  Receipt Date: 20100715
  Transmission Date: 20110219
  Serious: Yes (Other)
  Sender: FDA-Public Use
  Company Number: NZ-BAYER-201032566GPV

PATIENT
  Age: 54 Year
  Sex: Female

DRUGS (3)
  1. BETAFERON [Suspect]
     Indication: MULTIPLE SCLEROSIS
  2. AUGMENTIN '125' [Concomitant]
     Route: 048
  3. LEVOTHYROXINE SODIUM [Concomitant]
     Route: 048

REACTIONS (2)
  - DEHYDRATION [None]
  - VOMITING [None]
